FAERS Safety Report 13871853 (Version 1)
Quarter: 2017Q3

REPORT INFORMATION
  Report Type: Spontaneous
  Country: DE (occurrence: DE)
  Receive Date: 20170816
  Receipt Date: 20170816
  Transmission Date: 20171127
  Serious: Yes (Hospitalization)
  Sender: FDA-Public Use
  Company Number: DE-TEVA-794860GER

PATIENT
  Age: 7 Year
  Sex: Female
  Weight: 23 kg

DRUGS (2)
  1. NUROFEN SAFT [Concomitant]
     Indication: PYREXIA
  2. ERYTHROMYCIN SAFT [Suspect]
     Active Substance: ERYTHROMYCIN
     Indication: BRONCHITIS
     Route: 048

REACTIONS (4)
  - Abdominal pain upper [Recovering/Resolving]
  - Pyrexia [Recovering/Resolving]
  - Hepatitis [Recovering/Resolving]
  - Nausea [Recovering/Resolving]

NARRATIVE: CASE EVENT DATE: 20170720
